FAERS Safety Report 5127914-1 (Version None)
Quarter: 2006Q4

REPORT INFORMATION
  Report Type: 
  Country: None (occurrence: None)
  Receive Date: 20061011
  Receipt Date: 20060927
  Transmission Date: 20070319
  Serious: Yes (Other)
  Sender: FDA-Public Use
  Company Number: 2006RL000272

PATIENT
  Age: 63 Year
  Sex: Female

DRUGS (2)
  1. NIZATIDINE [Suspect]
     Indication: GASTRITIS
     Dosage: 150 MG; BID; PO
     Route: 048
     Dates: start: 20060621, end: 20060704
  2. VALSARTAN [Concomitant]

REACTIONS (2)
  - LEUKOPENIA [None]
  - NEUTROPHIL PERCENTAGE DECREASED [None]
